FAERS Safety Report 23221006 (Version 2)
Quarter: 2023Q4

REPORT INFORMATION
  Report Type: Report from Study
  Country: US (occurrence: US)
  Receive Date: 20231123
  Receipt Date: 20231129
  Transmission Date: 20240109
  Serious: Yes (Hospitalization)
  Sender: FDA-Public Use
  Company Number: US-GILEAD-2023-0651957

PATIENT
  Age: 3 Year
  Sex: Female

DRUGS (2)
  1. AMBRISENTAN [Suspect]
     Active Substance: AMBRISENTAN
     Indication: Pulmonary arterial hypertension
     Dosage: 5 MG, QD
     Route: 065
     Dates: start: 20230106
  2. SILDENAFIL [Concomitant]
     Active Substance: SILDENAFIL

REACTIONS (6)
  - Cardiac disorder [Unknown]
  - Dyspnoea exertional [Unknown]
  - Fatigue [Unknown]
  - Chest pain [Unknown]
  - Palpitations [Unknown]
  - Off label use [Not Recovered/Not Resolved]

NARRATIVE: CASE EVENT DATE: 20231030
